FAERS Safety Report 4982275-3 (Version None)
Quarter: 2006Q2

REPORT INFORMATION
  Report Type: 
  Country: None (occurrence: None)
  Receive Date: 20060419
  Receipt Date: 20060412
  Transmission Date: 20061013
  Serious: Yes (Hospitalization)
  Sender: FDA-Public Use
  Company Number: 2006-04-0859

PATIENT
  Sex: Male

DRUGS (2)
  1. RIBAVIRIN [Suspect]
     Dosage: ORAL
     Route: 048
  2. PEGASYS [Suspect]

REACTIONS (1)
  - LIVING IN RESIDENTIAL INSTITUTION [None]
